FAERS Safety Report 10640342 (Version 1)
Quarter: 2014Q4

REPORT INFORMATION
  Report Type: Spontaneous
  Country: US (occurrence: None)
  Receive Date: 20141208
  Receipt Date: 20141208
  Transmission Date: 20150529
  Serious: Yes (Other)
  Sender: FDA-Public Use
  Company Number: None

PATIENT
  Age: 64 Year
  Sex: Female
  Weight: 48.99 kg

DRUGS (2)
  1. LORAZEPAM. [Suspect]
     Active Substance: LORAZEPAM
     Indication: ANXIETY
     Dosage: .5 FOUR TIMES DAILY TAKEN BY MOUTH
     Route: 048
     Dates: start: 20141130
  2. LORAZAPAM [Suspect]
     Active Substance: LORAZEPAM
     Indication: ANXIETY
     Dosage: 1 FOR .5 MG FOUR TIMES DAILY TAKEN BY MOUTH
     Route: 048
     Dates: start: 20141204

REACTIONS (4)
  - Tinnitus [None]
  - Malaise [None]
  - Product substitution issue [None]
  - Product quality issue [None]

NARRATIVE: CASE EVENT DATE: 20141124
